FAERS Safety Report 15307103 (Version 1)
Quarter: 2018Q3

REPORT INFORMATION
  Report Type: Spontaneous
  Country: CA (occurrence: CA)
  Receive Date: 20180822
  Receipt Date: 20180822
  Transmission Date: 20181010
  Serious: Yes (Other)
  Sender: FDA-Public Use
  Company Number: CA-OCTA-NGAM10518CA

PATIENT
  Age: 48 Year
  Sex: Female

DRUGS (1)
  1. PANZYGA [Suspect]
     Active Substance: HUMAN IMMUNOGLOBULIN G
     Indication: URTICARIA
     Route: 042
     Dates: start: 20171214, end: 20171214

REACTIONS (10)
  - Tremor [Recovered/Resolved]
  - Urticaria [Unknown]
  - Heart rate increased [Recovered/Resolved]
  - Headache [Recovering/Resolving]
  - Back pain [Recovering/Resolving]
  - Hypertension [Recovered/Resolved]
  - Chills [Unknown]
  - Febrile nonhaemolytic transfusion reaction [Unknown]
  - Condition aggravated [Unknown]
  - Oropharyngeal pain [Unknown]

NARRATIVE: CASE EVENT DATE: 20171214
